FAERS Safety Report 8563902-0 (Version None)
Quarter: 2012Q3

REPORT INFORMATION
  Report Type: 
  Country: None (occurrence: None)
  Receive Date: 20120727
  Receipt Date: 20120727
  Transmission Date: 20120928
  Serious: Yes (Life-Threatening, Hospitalization)
  Sender: FDA-Public Use
  Company Number: None

PATIENT
  Age: 66 Year
  Sex: Female
  Weight: 104.3273 kg

DRUGS (2)
  1. XARELTO [Suspect]
     Indication: HIP ARTHROPLASTY
     Dosage: 10 MG ONCE, PO
     Route: 048
     Dates: start: 20111128, end: 20111128
  2. XARELTO [Suspect]
     Indication: ANTICOAGULANT THERAPY
     Dosage: 10 MG ONCE, PO
     Route: 048
     Dates: start: 20111128, end: 20111128

REACTIONS (2)
  - INCISION SITE HAEMORRHAGE [None]
  - EMBOLIC STROKE [None]
